FAERS Safety Report 23351268 (Version 1)
Quarter: 2023Q4

REPORT INFORMATION
  Report Type: Report from Study
  Country: TW (occurrence: None)
  Receive Date: 20231229
  Receipt Date: 20231229
  Transmission Date: 20240110
  Serious: Yes (Death)
  Sender: FDA-Public Use
  Company Number: 2023A296183

PATIENT
  Sex: Male

DRUGS (1)
  1. IMFINZI [Suspect]
     Active Substance: DURVALUMAB
     Dosage: 120.0MG UNKNOWN
     Route: 041
     Dates: start: 20231004, end: 20231004

REACTIONS (3)
  - Cerebrovascular accident [Fatal]
  - Skin cancer [Fatal]
  - Myelosuppression [Fatal]
